FAERS Safety Report 25760966 (Version 1)
Quarter: 2025Q3

REPORT INFORMATION
  Report Type: Other
  Country: CN (occurrence: CN)
  Receive Date: 20250904
  Receipt Date: 20250904
  Transmission Date: 20251021
  Serious: Yes (Life-Threatening, Other)
  Sender: LYNE LABORATORIES
  Company Number: CN-Lyne Laboratories Inc.-2183815

PATIENT
  Age: 68 Year
  Sex: Male

DRUGS (5)
  1. DEXAMETHASONE [Suspect]
     Active Substance: DEXAMETHASONE
     Indication: Hodgkin^s disease nodular sclerosis stage IV
     Dates: start: 20200520
  2. GEMCITABINE [Suspect]
     Active Substance: GEMCITABINE
     Dates: start: 20200520
  3. CEFOPERAZONE\SULBACTAM [Concomitant]
     Active Substance: CEFOPERAZONE\SULBACTAM
     Dates: start: 20200510
  4. CASPOFUNGIN ACETATE [Concomitant]
     Active Substance: CASPOFUNGIN ACETATE
     Dates: start: 20200510
  5. CISPLATIN [Suspect]
     Active Substance: CISPLATIN
     Dates: start: 20200520

REACTIONS (1)
  - Myelosuppression [Unknown]

NARRATIVE: CASE EVENT DATE: 20200101
